FAERS Safety Report 16144716 (Version 1)
Quarter: 2019Q1

REPORT INFORMATION
  Report Type: Spontaneous
  Country: US (occurrence: US)
  Receive Date: 20190227
  Receipt Date: 20190227
  Transmission Date: 20190418
  Serious: No
  Sender: FDA-Public Use
  Company Number: None

PATIENT
  Age: 76 Year
  Sex: Female

DRUGS (1)
  1. RAYALDEE [Suspect]
     Active Substance: CALCIFEDIOL
     Indication: HYPERPARATHYROIDISM SECONDARY
     Route: 048

REACTIONS (2)
  - Epigastric discomfort [None]
  - Influenza [None]
